FAERS Safety Report 5204341-X (Version None)
Quarter: 2007Q1

REPORT INFORMATION
  Report Type: 
  Country: None (occurrence: None)
  Receive Date: 20070110
  Receipt Date: 20060222
  Transmission Date: 20070707
  Serious: No
  Sender: FDA-Public Use
  Company Number: US-BRISTOL-MYERS SQUIBB COMPANY-13291927

PATIENT
  Age: 48 Year
  Sex: Female

DRUGS (6)
  1. ABILIFY [Suspect]
     Indication: INSOMNIA
     Dosage: STARTED AT 5 MG/D GRADUALLY INCREASED TO 30 MG -} 12-FEB-2006 PATIENT INCREASED DOSE TO 45 MG/D
     Route: 048
     Dates: start: 20060202
  2. CLONAZEPAM [Concomitant]
  3. LANTUS [Concomitant]
  4. HUMALOG [Concomitant]
  5. VICODIN [Concomitant]
  6. DURAGESIC-100 [Concomitant]

REACTIONS (1)
  - PRE-EXISTING CONDITION IMPROVED [None]
